FAERS Safety Report 8772514 (Version 1)
Quarter: 2012Q4

REPORT INFORMATION
  Report Type: 
  Country: US (occurrence: US)
  Receive Date: 20120905
  Receipt Date: 20120905
  Transmission Date: 20130627
  Serious: No
  Sender: FDA-Public Use
  Company Number: US-009507513-1208USA012247

PATIENT

DRUGS (2)
  1. JANUVIA [Suspect]
     Indication: DIABETES MELLITUS
     Dosage: 50 mg, qd
     Route: 048
     Dates: start: 2012
  2. METOCLOPRAMIDE [Concomitant]

REACTIONS (1)
  - Insomnia [Not Recovered/Not Resolved]
